FAERS Safety Report 9783321 (Version 1)
Quarter: 2013Q4

REPORT INFORMATION
  Report Type: Spontaneous
  Country: US (occurrence: US)
  Receive Date: 20131226
  Receipt Date: 20131226
  Transmission Date: 20140711
  Serious: Yes (Other)
  Sender: FDA-Public Use
  Company Number: US-BAYER-2013-156589

PATIENT
  Age: 41 Year
  Sex: Female
  Weight: 63.49 kg

DRUGS (1)
  1. YAZ [Suspect]

REACTIONS (1)
  - Deep vein thrombosis [Recovering/Resolving]
